FAERS Safety Report 16835462 (Version 1)
Quarter: 2019Q3

REPORT INFORMATION
  Report Type: Spontaneous
  Country: US (occurrence: US)
  Receive Date: 20190920
  Receipt Date: 20190920
  Transmission Date: 20191005
  Serious: No
  Sender: FDA-Public Use
  Company Number: US-AMARIN PHARMA, INC.-2019AMR000017

PATIENT
  Age: 68 Year
  Sex: Male
  Weight: 78.09 kg

DRUGS (6)
  1. ROSUVASTATIN CALCIUM. [Concomitant]
     Active Substance: ROSUVASTATIN CALCIUM
     Indication: BLOOD CHOLESTEROL ABNORMAL
     Route: 048
  2. ASPIRIN. [Concomitant]
     Active Substance: ASPIRIN
     Indication: ANTICOAGULANT THERAPY
     Route: 048
  3. CARVEDILOL. [Concomitant]
     Active Substance: CARVEDILOL
     Indication: HYPERTENSION
     Route: 048
  4. LISINOPRIL. [Concomitant]
     Active Substance: LISINOPRIL
     Indication: HYPERTENSION
     Route: 048
  5. VASCEPA [Suspect]
     Active Substance: ICOSAPENT ETHYL
     Indication: CARDIOVASCULAR DISORDER
     Route: 048
     Dates: start: 2018
  6. UBIQUINOL [Concomitant]
     Active Substance: UBIQUINOL
     Indication: CARDIAC DISORDER
     Route: 048
     Dates: start: 2018

REACTIONS (2)
  - Prescribed underdose [Not Recovered/Not Resolved]
  - Liquid product physical issue [Not Recovered/Not Resolved]

NARRATIVE: CASE EVENT DATE: 2018
